FAERS Safety Report 7124950-0 (Version None)
Quarter: 2010Q4

REPORT INFORMATION
  Report Type: 
  Country: None (occurrence: None)
  Receive Date: 20101123
  Receipt Date: 20101123
  Transmission Date: 20110411
  Serious: Yes (Hospitalization)
  Sender: FDA-Public Use
  Company Number: None

PATIENT
  Sex: Female
  Weight: 77.11 kg

DRUGS (16)
  1. CISPLATIN [Suspect]
     Dosage: 75 MG
     Dates: end: 20101110
  2. TAXOL [Suspect]
     Dosage: 135 MG
     Dates: end: 20101109
  3. ALBUTEROL [Concomitant]
  4. COLACE [Concomitant]
  5. COMPAZINE [Concomitant]
  6. DECADRON [Concomitant]
  7. DEXAMETHASONE [Concomitant]
  8. DIPHENHYDRAMINE [Concomitant]
  9. EMEND [Concomitant]
  10. FAMOTIDINE [Concomitant]
  11. FUROSEMIDE [Concomitant]
  12. IBUPROFEN [Concomitant]
  13. LORAZEPAM [Concomitant]
  14. PALONOSETRON [Concomitant]
  15. SANCUSO PATCH [Concomitant]
  16. TRAMADOL [Concomitant]

REACTIONS (3)
  - ABDOMINAL PAIN [None]
  - CONSTIPATION [None]
  - HYPONATRAEMIA [None]
